FAERS Safety Report 23768757 (Version 1)
Quarter: 2024Q2

REPORT INFORMATION
  Report Type: Spontaneous
  Country: CN (occurrence: CN)
  Receive Date: 20240422
  Receipt Date: 20240422
  Transmission Date: 20240716
  Serious: Yes (Hospitalization, Other)
  Sender: FDA-Public Use
  Company Number: CN-009507513-2404CHN007857

PATIENT
  Age: 51 Year
  Sex: Male
  Weight: 70 kg

DRUGS (3)
  1. CILASTATIN SODIUM\IMIPENEM [Suspect]
     Active Substance: CILASTATIN SODIUM\IMIPENEM
     Indication: Cholecystitis chronic
     Dosage: 1 GRAM, Q8H
     Route: 041
     Dates: start: 20240319, end: 20240322
  2. YOU NUO AN [Concomitant]
     Indication: Cholecystitis chronic
     Dosage: 100 MILLILITER, BID
     Route: 041
     Dates: start: 20240315, end: 20240325
  3. SODIUM CHLORIDE [Concomitant]
     Active Substance: SODIUM CHLORIDE
     Indication: Medication dilution
     Dosage: 100 MILLILITER, Q8H
     Route: 041
     Dates: start: 20240319, end: 20240322

REACTIONS (1)
  - Dysbiosis [Unknown]

NARRATIVE: CASE EVENT DATE: 20240321
